FAERS Safety Report 10072203 (Version 1)
Quarter: 2014Q2

REPORT INFORMATION
  Report Type: Spontaneous
  Country: US (occurrence: None)
  Receive Date: 20140410
  Receipt Date: 20140410
  Transmission Date: 20141212
  Serious: Yes (Other)
  Sender: FDA-Public Use
  Company Number: None

PATIENT
  Age: 74 Year
  Sex: Female
  Weight: 129.28 kg

DRUGS (1)
  1. FORTEO 600MCG/2.4ML ELI LILLY [Suspect]
     Indication: OSTEOPOROSIS
     Route: 058
     Dates: start: 20130816, end: 20140409

REACTIONS (1)
  - Peripheral swelling [None]
